FAERS Safety Report 8145373-1 (Version None)
Quarter: 2012Q1

REPORT INFORMATION
  Report Type: 
  Country: None (occurrence: None)
  Receive Date: 20120217
  Receipt Date: 20120210
  Transmission Date: 20120608
  Serious: Yes (Other)
  Sender: FDA-Public Use
  Company Number: BR-JNJFOC-20120104463

PATIENT
  Sex: Female

DRUGS (1)
  1. STELARA [Suspect]
     Indication: PRODUCT USED FOR UNKNOWN INDICATION
     Route: 058
     Dates: end: 20111101

REACTIONS (6)
  - DEPRESSION [None]
  - PRURITUS [None]
  - SUICIDAL IDEATION [None]
  - SKIN EXFOLIATION [None]
  - LIP INJURY [None]
  - HAEMORRHAGE [None]
